FAERS Safety Report 7953656-0 (Version None)
Quarter: 2011Q4

REPORT INFORMATION
  Report Type: 
  Country: None (occurrence: None)
  Receive Date: 20111202
  Receipt Date: 20111124
  Transmission Date: 20120403
  Serious: Yes (Other)
  Sender: FDA-Public Use
  Company Number: FR-JNJFOC-20111112388

PATIENT
  Age: 60 Year
  Sex: Female

DRUGS (3)
  1. LAMICTAL [Concomitant]
     Indication: PRODUCT USED FOR UNKNOWN INDICATION
     Route: 065
  2. TOPIRAMATE [Suspect]
     Indication: EPILEPSY
     Route: 048
  3. TOPIRAMATE [Suspect]
     Route: 048
     Dates: start: 19990101

REACTIONS (5)
  - RENAL FAILURE [None]
  - HYPERCALCAEMIA [None]
  - HYPERPARATHYROIDISM [None]
  - NEPHROLITHIASIS [None]
  - HYPERCALCIURIA [None]
